FAERS Safety Report 9718743 (Version 1)
Quarter: 2013Q4

REPORT INFORMATION
  Report Type: Not Available
  Country: US (occurrence: US)
  Receive Date: 20131125
  Receipt Date: 20131125
  Transmission Date: 20140711
  Serious: No
  Sender: FDA-Public Use
  Company Number: US-H. LUNDBECK A/S-DKLU1093791

PATIENT
  Age: 23 Year
  Sex: Female

DRUGS (2)
  1. ONFI [Suspect]
     Indication: EPILEPSY
     Route: 048
     Dates: start: 20120304, end: 201308
  2. ONFI [Suspect]
     Indication: STATUS EPILEPTICUS

REACTIONS (2)
  - Urticaria [Unknown]
  - Rash [Unknown]
